FAERS Safety Report 6241351-8 (Version None)
Quarter: 2009Q2

REPORT INFORMATION
  Report Type: 
  Country: None (occurrence: None)
  Receive Date: 20090623
  Receipt Date: 20090616
  Transmission Date: 20091009
  Serious: Yes (Death, Other)
  Sender: FDA-Public Use
  Company Number: GB-ABBOTT-09P-167-0577987-00

PATIENT
  Sex: Female

DRUGS (3)
  1. KALETRA [Suspect]
     Indication: DRUG USE FOR UNKNOWN INDICATION
     Dates: start: 20081028
  2. COMBIVIR [Suspect]
     Indication: DRUG USE FOR UNKNOWN INDICATION
     Dates: start: 20081028
  3. LOMOTIL [Concomitant]
     Indication: DIARRHOEA
     Dates: start: 20081101

REACTIONS (3)
  - STILLBIRTH [None]
  - UMBILICAL CORD VASCULAR DISORDER [None]
  - VENOUS THROMBOSIS [None]
